FAERS Safety Report 5517596-9 (Version None)
Quarter: 2007Q4

REPORT INFORMATION
  Report Type: 
  Country: None (occurrence: None)
  Receive Date: 20071114
  Receipt Date: 20071102
  Transmission Date: 20080405
  Serious: Yes (Death)
  Sender: FDA-Public Use
  Company Number: GB-PFIZER INC-2007093051

PATIENT
  Age: 15 Year
  Sex: Male

DRUGS (5)
  1. VORICONAZOLE [Suspect]
     Indication: LUNG DISORDER
  2. CASPOFUNGIN ACETATE [Suspect]
     Indication: LUNG DISORDER
     Route: 042
  3. MYCOPHENOLATE MOFETIL [Concomitant]
  4. PREDNISOLONE [Concomitant]
  5. TACROLIMUS [Concomitant]

REACTIONS (2)
  - LUNG DISORDER [None]
  - PNEUMOTHORAX [None]
